FAERS Safety Report 17467574 (Version 1)
Quarter: 2020Q1

REPORT INFORMATION
  Report Type: Spontaneous
  Country: DE (occurrence: DE)
  Receive Date: 20200227
  Receipt Date: 20200227
  Transmission Date: 20200409
  Serious: Yes (Hospitalization)
  Sender: FDA-Public Use
  Company Number: DE-SA-2020SA045570

PATIENT
  Age: 75 Year
  Sex: Female
  Weight: 73 kg

DRUGS (4)
  1. INSULIN DEGLUDEC [Suspect]
     Active Substance: INSULIN DEGLUDEC
     Dosage: 200 IE, 6-0-0-0
     Route: 058
  2. INSULIN LISPRO [Suspect]
     Active Substance: INSULIN LISPRO
     Dosage: 100 IE, 4-4-3-0
     Route: 058
  3. METOPROLOL. [Concomitant]
     Active Substance: METOPROLOL
     Dosage: 45 MG
     Route: 048
  4. PANKREATIN [Concomitant]
     Active Substance: PANCRELIPASE
     Dosage: 25000 IE, 1-1-0-0
     Route: 048

REACTIONS (7)
  - Decreased appetite [Unknown]
  - Blood glucose fluctuation [Unknown]
  - Dizziness [Unknown]
  - Hyperglycaemia [Unknown]
  - Product administration error [Unknown]
  - Nausea [Unknown]
  - Hypoglycaemia [Unknown]

NARRATIVE: CASE EVENT DATE: 20190724
